FAERS Safety Report 21928635 (Version 1)
Quarter: 2023Q1

REPORT INFORMATION
  Report Type: Report from Study
  Country: US (occurrence: US)
  Receive Date: 20230130
  Receipt Date: 20230130
  Transmission Date: 20230418
  Serious: Yes (Other)
  Sender: FDA-Public Use
  Company Number: US-ABBVIE-4285901

PATIENT
  Sex: Female

DRUGS (2)
  1. VENCLEXTA [Suspect]
     Active Substance: VENETOCLAX
     Indication: Myelodysplastic syndrome
     Route: 048
     Dates: start: 202301
  2. VENCLEXTA [Suspect]
     Active Substance: VENETOCLAX
     Indication: Myelodysplastic syndrome
     Dosage: FOR TWO WEEKS

REACTIONS (6)
  - Platelet count abnormal [Unknown]
  - Red blood cell count abnormal [Unknown]
  - Asthenia [Unknown]
  - Off label use [Unknown]
  - Malaise [Unknown]
  - Neutropenia [Unknown]
